FAERS Safety Report 12542783 (Version 2)
Quarter: 2016Q3

REPORT INFORMATION
  Report Type: Spontaneous
  Country: US (occurrence: US)
  Receive Date: 20160709
  Receipt Date: 20160713
  Transmission Date: 20161109
  Serious: No
  Sender: FDA-Public Use
  Company Number: US-009507513-1606USA012756

PATIENT
  Sex: Female
  Weight: 77.98 kg

DRUGS (1)
  1. NEXPLANON [Suspect]
     Active Substance: ETONOGESTREL
     Indication: CONTRACEPTION
     Dosage: 3 YEAR IMPLANT, IMPLANT IN THE LEFT ARM
     Route: 059
     Dates: start: 20130925

REACTIONS (3)
  - Vaginal haemorrhage [Unknown]
  - Vulvovaginal dryness [Unknown]
  - Menorrhagia [Unknown]
